FAERS Safety Report 4391245-8 (Version None)
Quarter: 2004Q2

REPORT INFORMATION
  Report Type: 
  Country: None (occurrence: None)
  Receive Date: 20040621
  Receipt Date: 20031114
  Transmission Date: 20050107
  Serious: Yes (Hospitalization, Other)
  Sender: FDA-Public Use
  Company Number: USA-2002-0003459

PATIENT
  Age: 55 Year
  Sex: Male

DRUGS (17)
  1. OXYCONTIN [Suspect]
     Indication: PAIN
     Dates: start: 19970726, end: 20001130
  2. NEURONTIN [Concomitant]
  3. XANAX [Concomitant]
  4. CELEXA [Concomitant]
  5. PAXIL [Concomitant]
  6. SYNTHROID [Concomitant]
  7. ZANAFLEX [Concomitant]
  8. RELAFEN [Concomitant]
  9. CYTOTEC [Concomitant]
  10. ELAVIL [Concomitant]
  11. LORTAB [Concomitant]
  12. IMDUR [Concomitant]
  13. K-DUR 10 [Concomitant]
  14. ASPIRIN [Concomitant]
  15. ZOCOR [Concomitant]
  16. VERAPAMIL [Concomitant]
  17. PRILOSEC [Concomitant]

REACTIONS (27)
  - ACTIVITIES OF DAILY LIVING IMPAIRED [None]
  - ANXIETY [None]
  - ASTHENIA [None]
  - BRADYPHRENIA [None]
  - BURNING SENSATION [None]
  - CHEST PAIN [None]
  - CONSTIPATION [None]
  - DEPRESSION [None]
  - DRUG DEPENDENCE [None]
  - DRUG TOLERANCE INCREASED [None]
  - DRUG WITHDRAWAL SYNDROME [None]
  - DYSPNOEA [None]
  - DYSURIA [None]
  - ERECTILE DYSFUNCTION [None]
  - FATIGUE [None]
  - HEADACHE [None]
  - HYPOAESTHESIA [None]
  - INSOMNIA [None]
  - MUSCLE TIGHTNESS [None]
  - NEUROPATHY PERIPHERAL [None]
  - OEDEMA PERIPHERAL [None]
  - PAIN [None]
  - PARAESTHESIA [None]
  - RASH [None]
  - SLEEP APNOEA SYNDROME [None]
  - WEIGHT INCREASED [None]
  - WHEEZING [None]
